FAERS Safety Report 6009081-5 (Version None)
Quarter: 2008Q4

REPORT INFORMATION
  Report Type: 
  Country: None (occurrence: None)
  Receive Date: 20081216
  Receipt Date: 20081204
  Transmission Date: 20090506
  Serious: Yes (Death)
  Sender: FDA-Public Use
  Company Number: 2008AL012237

PATIENT
  Sex: Female

DRUGS (1)
  1. DIGOXIN [Suspect]
     Indication: HEART RATE IRREGULAR

REACTIONS (5)
  - ARRHYTHMIA [None]
  - FALL [None]
  - FATIGUE [None]
  - INJURY [None]
  - THERAPEUTIC AGENT TOXICITY [None]
